FAERS Safety Report 18308638 (Version 3)
Quarter: 2021Q2

REPORT INFORMATION
  Report Type: Report from Study
  Country: US (occurrence: US)
  Receive Date: 20200924
  Receipt Date: 20210629
  Transmission Date: 20210717
  Serious: Yes (Other)
  Sender: FDA-Public Use
  Company Number: US-TEVA-2020-US-1805707

PATIENT
  Age: 35 Year
  Sex: Male

DRUGS (1)
  1. COPAXONE [Suspect]
     Active Substance: GLATIRAMER ACETATE
     Indication: MULTIPLE SCLEROSIS
     Route: 058
     Dates: start: 20180601

REACTIONS (9)
  - Erythema [Unknown]
  - Heart rate increased [Unknown]
  - Respiration abnormal [Recovered/Resolved]
  - Dyspnoea [Recovered/Resolved]
  - Muscle strain [Recovered/Resolved]
  - Urticaria [Recovered/Resolved]
  - Shock symptom [Recovered/Resolved]
  - Immediate post-injection reaction [Unknown]
  - Pruritus [Unknown]

NARRATIVE: CASE EVENT DATE: 202007
